FAERS Safety Report 9202373 (Version 1)
Quarter: 2013Q1

REPORT INFORMATION
  Report Type: Spontaneous
  Country: US (occurrence: None)
  Receive Date: 20130329
  Receipt Date: 20130329
  Transmission Date: 20140127
  Serious: No
  Sender: FDA-Public Use
  Company Number: None

PATIENT
  Age: 70 Year
  Sex: Female
  Weight: 74.84 kg

DRUGS (2)
  1. MOVI PREP SOL 1055 (PEG-3350) [Suspect]
     Indication: COLONOSCOPY
     Dosage: DRANK 3 OF 8 GLASSES 8 0Z.
     Route: 048
     Dates: start: 20130306
  2. MOVI PREP SOL 1055 (PEG-3350) [Suspect]
     Indication: BOWEL PREPARATION
     Dosage: DRANK 3 OF 8 GLASSES 8 0Z.
     Route: 048
     Dates: start: 20130306

REACTIONS (2)
  - Vomiting [None]
  - Nausea [None]
